FAERS Safety Report 7133054-2 (Version None)
Quarter: 2010Q4

REPORT INFORMATION
  Report Type: 
  Country: None (occurrence: None)
  Receive Date: 20101202
  Receipt Date: 20101126
  Transmission Date: 20110411
  Serious: Yes (Death)
  Sender: FDA-Public Use
  Company Number: A0897339A

PATIENT
  Sex: Male
  Weight: 85 kg

DRUGS (1)
  1. SERETIDE [Suspect]
     Indication: ASTHMA
     Dates: start: 20000101, end: 20101124

REACTIONS (1)
  - RESPIRATORY FAILURE [None]
